FAERS Safety Report 4435413-5 (Version None)
Quarter: 2004Q3

REPORT INFORMATION
  Report Type: 
  Country: None (occurrence: None)
  Receive Date: 20040826
  Receipt Date: 20040813
  Transmission Date: 20050211
  Serious: No
  Sender: FDA-Public Use
  Company Number: 04H-035-0270905-00

PATIENT
  Age: 46 Year
  Sex: Female

DRUGS (2)
  1. AMINOPHYLLIN [Suspect]
     Indication: ASTHMA
     Dosage: INJECTION
  2. ASMETON [Suspect]
     Indication: ASTHMA
     Dosage: 2 TABLETS PER DAY, PER ORAL
     Route: 048

REACTIONS (3)
  - DRUG INTERACTION [None]
  - NODAL ARRHYTHMIA [None]
  - PALPITATIONS [None]
